FAERS Safety Report 15647499 (Version 1)
Quarter: 2018Q4

REPORT INFORMATION
  Report Type: Spontaneous
  Country: US (occurrence: US)
  Receive Date: 20181122
  Receipt Date: 20181122
  Transmission Date: 20190205
  Serious: Yes (Hospitalization)
  Sender: FDA-Public Use
  Company Number: US-SERB S.A.S.-2059195

PATIENT
  Age: 33 Year
  Sex: Female

DRUGS (7)
  1. CYANOKIT [Suspect]
     Active Substance: HYDROXOCOBALAMIN
     Indication: BLOOD CYANIDE INCREASED
     Route: 065
  2. MAGNESIUM SULFATE. [Concomitant]
     Active Substance: MAGNESIUM SULFATE
  3. VASOPRESSIN. [Concomitant]
     Active Substance: VASOPRESSIN
  4. HUMCO CHARCOAL ACTIVATED [Concomitant]
     Active Substance: ACTIVATED CHARCOAL
  5. SODUM THIOSULFATE [Concomitant]
     Active Substance: SODIUM THIOSULFATE
  6. NOREPINEPHRINE. [Concomitant]
     Active Substance: NOREPINEPHRINE
  7. LORAZEPAM. [Concomitant]
     Active Substance: LORAZEPAM

REACTIONS (1)
  - Intentional overdose [Recovered/Resolved]
